FAERS Safety Report 12336453 (Version 1)
Quarter: 2016Q2

REPORT INFORMATION
  Report Type: Spontaneous
  Country: US (occurrence: None)
  Receive Date: 20160504
  Receipt Date: 20160504
  Transmission Date: 20160815
  Serious: No
  Sender: FDA-Public Use
  Company Number: None

PATIENT
  Age: 65 Year
  Sex: Female

DRUGS (3)
  1. PLAQUNIL [Concomitant]
  2. XELJANZ [Suspect]
     Active Substance: TOFACITINIB CITRATE
     Indication: RHEUMATOID ARTHRITIS
     Route: 048
     Dates: start: 20150327, end: 201604
  3. NUCALA [Concomitant]
     Active Substance: MEPOLIZUMAB

REACTIONS (1)
  - Asthma [None]

NARRATIVE: CASE EVENT DATE: 201604
